FAERS Safety Report 18852859 (Version 1)
Quarter: 2021Q1

REPORT INFORMATION
  Report Type: Spontaneous
  Country: US (occurrence: US)
  Receive Date: 20210205
  Receipt Date: 20210205
  Transmission Date: 20210420
  Serious: Yes (Hospitalization)
  Sender: FDA-Public Use
  Company Number: None

PATIENT
  Age: 19 Day
  Sex: Female
  Weight: 2.27 kg

DRUGS (3)
  1. DIAZOXIDE [Suspect]
     Active Substance: DIAZOXIDE
     Indication: HYPOGLYCAEMIA NEONATAL
     Route: 048
     Dates: start: 20210119
  2. CHOLECALCIFEROL 10MCG/ML (200 UNITS) [Concomitant]
  3. POLY?VI?SOL WITH IRON SOLUTION 0.5ML [Concomitant]

REACTIONS (3)
  - Pulmonary oedema [None]
  - Tachypnoea [None]
  - Cardiac failure congestive [None]

NARRATIVE: CASE EVENT DATE: 20210125
